FAERS Safety Report 22068390 (Version 1)
Quarter: 2023Q1

REPORT INFORMATION
  Report Type: Spontaneous
  Country: JP (occurrence: JP)
  Receive Date: 20230307
  Receipt Date: 20230307
  Transmission Date: 20230418
  Serious: Yes (Hospitalization)
  Sender: FDA-Public Use
  Company Number: JP-GLAXOSMITHKLINE-JP2023JPN034033

PATIENT

DRUGS (2)
  1. DAPRODUSTAT [Suspect]
     Active Substance: DAPRODUSTAT
     Dosage: UNK
  2. ROXADUSTAT [Concomitant]
     Active Substance: ROXADUSTAT
     Dosage: UNK, ON TUESDAY, THURSDAY, AND SATURDAY

REACTIONS (1)
  - Urinary tract infection [Unknown]
